FAERS Safety Report 17303038 (Version 1)
Quarter: 2020Q1

REPORT INFORMATION
  Report Type: Spontaneous
  Country: GB (occurrence: GB)
  Receive Date: 20200122
  Receipt Date: 20200122
  Transmission Date: 20200409
  Serious: Yes (Hospitalization, Other)
  Sender: FDA-Public Use
  Company Number: GB-CLOVIS ONCOLOGY-CLO-2019-002579

PATIENT

DRUGS (1)
  1. RUBRACA [Suspect]
     Active Substance: RUCAPARIB CAMSYLATE
     Indication: OVARIAN CANCER
     Dosage: 600 MG, BID
     Route: 065

REACTIONS (6)
  - Lower respiratory tract infection [Unknown]
  - Aspartate aminotransferase increased [Recovered/Resolved]
  - Adverse event [Unknown]
  - Platelet count decreased [Unknown]
  - General physical health deterioration [Unknown]
  - Alanine aminotransferase increased [Recovered/Resolved]

NARRATIVE: CASE EVENT DATE: 201912
